FAERS Safety Report 5884051-6 (Version None)
Quarter: 2008Q3

REPORT INFORMATION
  Report Type: 
  Country: None (occurrence: None)
  Receive Date: 20080915
  Receipt Date: 20080910
  Transmission Date: 20090109
  Serious: Yes (Hospitalization)
  Sender: FDA-Public Use
  Company Number: US-MERCK-0807USA05509

PATIENT
  Age: 60 Year
  Sex: Female

DRUGS (6)
  1. VYTORIN [Suspect]
     Indication: HYPERLIPIDAEMIA
     Route: 048
     Dates: start: 20060828
  2. VYTORIN [Suspect]
     Indication: HYPERTENSION
     Route: 048
     Dates: start: 20060828
  3. LUNESTA [Concomitant]
     Route: 065
     Dates: start: 20060828
  4. NICOTINE [Concomitant]
     Route: 065
  5. BONIVA [Concomitant]
     Route: 065
  6. FOSAMAX PLUS D [Concomitant]
     Route: 048
     Dates: start: 20070216

REACTIONS (3)
  - HEPATIC NEOPLASM MALIGNANT [None]
  - NAUSEA [None]
  - TACHYCARDIA [None]
